FAERS Safety Report 5568353-9 (Version None)
Quarter: 2007Q4

REPORT INFORMATION
  Report Type: 
  Country: None (occurrence: None)
  Receive Date: 20071220
  Receipt Date: 20071210
  Transmission Date: 20080405
  Serious: Yes (Other)
  Sender: FDA-Public Use
  Company Number: TR-AMGEN-US256947

PATIENT
  Age: 30 Year
  Sex: Female
  Weight: 55 kg

DRUGS (5)
  1. ENBREL [Suspect]
     Indication: RHEUMATOID ARTHRITIS
     Dosage: UNKNOWN
     Route: 058
     Dates: start: 20070717, end: 20071101
  2. SALAZOPYRIN [Concomitant]
     Indication: RHEUMATOID ARTHRITIS
     Dosage: 3X2
     Route: 048
  3. FOSAMAX [Concomitant]
     Indication: OSTEOPOROSIS
     Dosage: 70 MG, FREQUENCY UNKNOWN
     Route: 048
  4. QUENSYL [Concomitant]
     Indication: RHEUMATOID ARTHRITIS
     Dosage: 2X1
     Route: 048
  5. ARAVA [Concomitant]
     Indication: RHEUMATOID ARTHRITIS
     Dosage: 2X1
     Route: 048

REACTIONS (2)
  - PLEURAL EFFUSION [None]
  - TUBERCULOSIS [None]
